FAERS Safety Report 17409484 (Version 1)
Quarter: 2020Q1

REPORT INFORMATION
  Report Type: Spontaneous
  Country: CA (occurrence: CA)
  Receive Date: 20200212
  Receipt Date: 20200212
  Transmission Date: 20200409
  Serious: Yes (Hospitalization, Other)
  Sender: FDA-Public Use
  Company Number: CA-PFIZER INC-2020006879

PATIENT
  Age: 48 Year
  Sex: Male
  Weight: 78.5 kg

DRUGS (6)
  1. VENLAFAXINE HCL [Suspect]
     Active Substance: VENLAFAXINE HYDROCHLORIDE
     Indication: DEPRESSION
     Dosage: 225 MG, UNK
  2. BUPROPION. [Concomitant]
     Active Substance: BUPROPION
     Dosage: 150 MG, UNK
  3. EFFEXOR XR [Suspect]
     Active Substance: VENLAFAXINE HYDROCHLORIDE
     Dosage: 150 MG, UNK
  4. VENLAFAXINE HCL [Suspect]
     Active Substance: VENLAFAXINE HYDROCHLORIDE
     Dosage: 150 MG, UNK
  5. PRO-CLONAZEPAM [Concomitant]
     Dosage: UNK
     Dates: start: 201809
  6. EFFEXOR XR [Suspect]
     Active Substance: VENLAFAXINE HYDROCHLORIDE
     Indication: MAJOR DEPRESSION
     Dosage: 225 MG, DAILY
     Dates: start: 201809

REACTIONS (20)
  - Suicide attempt [Unknown]
  - Self esteem decreased [Unknown]
  - Anxiety [Unknown]
  - Agitation [Unknown]
  - Nervousness [Recovered/Resolved]
  - Loss of consciousness [Unknown]
  - Behaviour disorder [Unknown]
  - Electric shock [Unknown]
  - Psychotic disorder [Recovered/Resolved]
  - Hallucination [Unknown]
  - Insomnia [Unknown]
  - Balance disorder [Unknown]
  - Depressed mood [Unknown]
  - Feeling abnormal [Recovered/Resolved]
  - Memory impairment [Not Recovered/Not Resolved]
  - Dissociation [Not Recovered/Not Resolved]
  - Negative thoughts [Unknown]
  - Crying [Unknown]
  - Disease progression [Unknown]
  - Major depression [Unknown]

NARRATIVE: CASE EVENT DATE: 201811
